FAERS Safety Report 5164316-6 (Version None)
Quarter: 2006Q4

REPORT INFORMATION
  Report Type: 
  Country: None (occurrence: None)
  Receive Date: 20061127
  Receipt Date: 20061127
  Transmission Date: 20070319
  Serious: Yes (Hospitalization)
  Sender: FDA-Public Use
  Company Number: None

PATIENT
  Age: 88 Year
  Sex: Female

DRUGS (4)
  1. SEROQUEL [Suspect]
     Indication: DEPRESSION
     Dosage: 75 MG OD PO
     Route: 048
  2. NORVASC [Concomitant]
  3. METOPROLOL SUCCINATE [Concomitant]
  4. LEXAPRO [Concomitant]

REACTIONS (2)
  - ORTHOSTATIC HYPOTENSION [None]
  - PARKINSONISM [None]
